FAERS Safety Report 9384415 (Version 5)
Quarter: 2014Q3

REPORT INFORMATION
  Report Type: Report from Study
  Country: MX (occurrence: MX)
  Receive Date: 20130705
  Receipt Date: 20140702
  Transmission Date: 20150326
  Serious: Yes (Death)
  Sender: FDA-Public Use
  Company Number: PHHY2013MX070062

PATIENT
  Age: 31 Year
  Sex: Male
  Weight: 62.3 kg

DRUGS (5)
  1. GLIVEC [Suspect]
     Active Substance: IMATINIB MESYLATE
     Dosage: 600 MG, UNK
  2. GLIVEC [Suspect]
     Active Substance: IMATINIB MESYLATE
     Indication: CHRONIC MYELOID LEUKAEMIA
     Dosage: 400 MG, UNK
     Dates: start: 20060119
  3. ALLOPURINOL. [Concomitant]
     Active Substance: ALLOPURINOL
  4. GLIVEC [Suspect]
     Active Substance: IMATINIB MESYLATE
     Dosage: 800 MG, UNK
     Dates: start: 20130411
  5. HYDROXYUREA. [Concomitant]
     Active Substance: HYDROXYUREA
     Dosage: 1 DF, Q12H

REACTIONS (7)
  - Gastrointestinal disorder [Unknown]
  - White blood cell count increased [Unknown]
  - Death [Fatal]
  - Blast cells present [Unknown]
  - No therapeutic response [Unknown]
  - Platelet count increased [Unknown]
  - Anaemia [Unknown]
